FAERS Safety Report 7457938-0 (Version None)
Quarter: 2011Q2

REPORT INFORMATION
  Report Type: 
  Country: None (occurrence: None)
  Receive Date: 20110502
  Receipt Date: 20110502
  Transmission Date: 20111010
  Serious: Yes (Hospitalization)
  Sender: FDA-Public Use
  Company Number: None

PATIENT
  Sex: Female
  Weight: 85.2 kg

DRUGS (27)
  1. VINCRISTINE SULFATE [Suspect]
     Dosage: 2 MG
  2. DILAUDID [Concomitant]
  3. FLEXERIL [Concomitant]
  4. FLUCONAZOLE [Concomitant]
  5. INSULIN [Concomitant]
  6. SODIUM CHLORIDE [Concomitant]
  7. VALTREX [Concomitant]
  8. HUMULIN R [Concomitant]
  9. PRILOSEC [Concomitant]
  10. BENADRYL [Concomitant]
  11. GABAPENTIN [Concomitant]
  12. LISINOPRIL [Concomitant]
  13. TOPROL-XL [Concomitant]
  14. ADDERALL 10 [Concomitant]
  15. ATIVAN [Concomitant]
  16. IMITREX [Concomitant]
  17. MORPHINE SULFATE [Concomitant]
  18. PHENERGAN HCL [Concomitant]
  19. METHOTREXATE [Suspect]
     Dosage: 15 MG
  20. MARINOL [Concomitant]
  21. METOPROLOL TARTRATE [Concomitant]
  22. SUMATRIPTAN SUCCINATE [Concomitant]
  23. COMPAZINE [Concomitant]
  24. MS CONTIN [Concomitant]
  25. ACETAMINOPHEN [Concomitant]
  26. MERCAPTOPURINE [Suspect]
     Dosage: 150 MG
  27. MORPHINE JR [Concomitant]

REACTIONS (6)
  - GALLBLADDER DISORDER [None]
  - PANCYTOPENIA [None]
  - DIABETIC KETOACIDOSIS [None]
  - TACHYCARDIA [None]
  - HEADACHE [None]
  - TENDERNESS [None]
